FAERS Safety Report 7544232-2 (Version None)
Quarter: 2011Q2

REPORT INFORMATION
  Report Type: 
  Country: None (occurrence: None)
  Receive Date: 20110613
  Receipt Date: 20070621
  Transmission Date: 20111010
  Serious: Yes (Hospitalization, Other)
  Sender: FDA-Public Use
  Company Number: PHHO2007MX09960

PATIENT
  Sex: Female

DRUGS (2)
  1. DIOVAN HCT [Suspect]
     Indication: HYPERTENSION
     Dosage: 1/2TABLET (160/25MG)
     Route: 048
     Dates: start: 20060601, end: 20060801
  2. DIOVAN HCT [Suspect]
     Dosage: 80/12.5MG PER DAY
     Route: 048
     Dates: start: 20070601

REACTIONS (3)
  - ANGINA PECTORIS [None]
  - DRUG INEFFECTIVE [None]
  - HYPERTENSION [None]
